FAERS Safety Report 6106264-0 (Version None)
Quarter: 2009Q1

REPORT INFORMATION
  Report Type: 
  Country: None (occurrence: None)
  Receive Date: 20090306
  Receipt Date: 20090224
  Transmission Date: 20090719
  Serious: Yes (Disabling, Other)
  Sender: FDA-Public Use
  Company Number: PHEH2009US02029

PATIENT
  Sex: Female
  Weight: 53.968 kg

DRUGS (35)
  1. RECLAST [Suspect]
     Indication: OSTEOPOROSIS
     Dosage: 5 MG, UNK
     Route: 042
     Dates: start: 20081024
  2. SINGULAIR [Concomitant]
     Dosage: 10 MG, QD
     Route: 048
  3. LEVOXYL [Concomitant]
     Dosage: 75 MCG, QD
     Route: 048
  4. DILTIAZEM [Concomitant]
     Dosage: 240 MG, QD
     Route: 048
  5. TIGAN [Concomitant]
     Dosage: 300 MG, Q6H
     Route: 048
  6. PREVACID [Concomitant]
     Dosage: 30 MG, BID
     Route: 048
  7. DARVOCET-N 100 [Concomitant]
     Dosage: 100/650 MG, Q4-6H PRN
     Route: 048
  8. HYDRODIURIL [Concomitant]
     Dosage: 25 MG, QD
     Route: 048
  9. LOPID [Concomitant]
     Dosage: 600 MG, QD
     Route: 048
  10. MAGNESIUM OXIDE [Concomitant]
     Dosage: 400 MG, BID
     Route: 048
  11. ATIVAN [Concomitant]
     Dosage: 0.5 MG, BID
     Route: 048
  12. LOMOTIL [Concomitant]
     Dosage: 2.5/0.25 MG, FIVE TIMES DAILY
     Route: 048
  13. BACTRIM DS [Concomitant]
     Dosage: 800/160 MG, BID
     Route: 048
  14. KLOR-CON [Concomitant]
     Dosage: 10 MEQ, QD
     Route: 048
  15. PREDNISONE [Concomitant]
     Dosage: 5 MG, UNK
  16. VALIUM [Concomitant]
     Dosage: 10 MG, TAKE 1/2 TAB QHS, PRN
     Route: 048
  17. FLOVENT [Concomitant]
     Dosage: 220 MCG, INHALE TWO TIMES BID
  18. LOTRISONE [Concomitant]
     Dosage: 1.0-0.05%, BID PRN
     Route: 061
  19. VENTOLIN DISKUS [Concomitant]
     Dosage: 90 MCG, FOUR TIMES DAILY
  20. SACCHAROMYCES BOULARDII [Concomitant]
     Dosage: 250 MG, BID
     Route: 048
  21. ASTELIN [Concomitant]
     Dosage: 137 MCG, BID
     Route: 045
  22. CLARINEX                                /USA/ [Concomitant]
     Dosage: 5 MG, QD
  23. RESTORIL [Concomitant]
     Dosage: 7.5 MG, QHS PRN
     Route: 048
  24. SPIRIVA [Concomitant]
     Dosage: 18 MCG, QD
  25. FLEXERIL [Concomitant]
     Dosage: 10 MG, QHS
     Route: 048
  26. FLONASE [Concomitant]
     Dosage: 50 MCG, TWO TIMES EACH NOSTRIL QD
     Route: 045
  27. ANTIVERT ^PFIZER^ [Concomitant]
     Dosage: 12.5 MG, TID PRN
     Route: 048
  28. CYANOCOBALAMIN [Concomitant]
     Dosage: 1.0 ML, QMO
     Route: 058
  29. VITAMIN E [Concomitant]
     Dosage: 400 U, BID
     Route: 048
  30. BENTYL [Concomitant]
     Dosage: 20 MG, QD
  31. CALCIUM WITH VITAMIN D [Concomitant]
     Dosage: 600/200 MG
     Route: 048
  32. FIBERCON (POLYCARBOPHIL CALCIUM) [Concomitant]
     Dosage: 625 MG, THREE TABS QD
     Route: 048
  33. ATARAX [Concomitant]
     Dosage: 25 MG, TID PRN
  34. MULTI-VITAMINS [Concomitant]
     Dosage: UNK
     Route: 048
  35. ASPIRIN [Concomitant]
     Dosage: 81 MG, QD
     Route: 048

REACTIONS (6)
  - DIZZINESS [None]
  - DYSURIA [None]
  - HYPOAESTHESIA [None]
  - PAIN [None]
  - PAIN IN JAW [None]
  - PARAESTHESIA [None]
